FAERS Safety Report 8598493 (Version 3)
Quarter: 2013Q4

REPORT INFORMATION
  Report Type: Spontaneous
  Country: US (occurrence: US)
  Receive Date: 20120605
  Receipt Date: 20131204
  Transmission Date: 20140711
  Serious: No
  Sender: FDA-Public Use
  Company Number: US-ASTRAZENECA-2012SE34486

PATIENT
  Age: 45 Year
  Sex: Female

DRUGS (16)
  1. NEXIUM [Suspect]
     Route: 048
     Dates: start: 20130129
  2. NEXIUM [Suspect]
     Route: 048
     Dates: start: 20130814
  3. CELEXA [Concomitant]
     Dates: start: 20130129
  4. VISTARIL [Concomitant]
     Dates: start: 20130129
  5. CELEBREX [Concomitant]
     Dates: start: 20130129
  6. HCTZ [Concomitant]
     Dates: start: 20130129
  7. LIPITOR [Concomitant]
     Dates: start: 20130129
  8. VYTORIN [Concomitant]
     Dates: start: 20130129
  9. ZYRTEC [Concomitant]
     Dates: start: 20130129
  10. MOTRIN [Concomitant]
     Indication: PAIN
     Dosage: 800 MG 1 TAB ,PO, TID, 30 TAB, PRN
     Dates: start: 20130129
  11. WELLBUTRIN XL [Concomitant]
     Dosage: 150 MG 1 TAB, PO, Q24H, 30 TAB
     Dates: start: 20130129
  12. TRAZADONE [Concomitant]
     Indication: INSOMNIA
     Dosage: 50 MG ORAL TABLET :1 TO 2 TAB. PO, QHS, 60CAP, PRN
     Dates: start: 20130129
  13. NORCO/ LORTAB [Concomitant]
     Indication: PAIN
     Dosage: 1TAB, PO, Q4H, 24TAB, PRN
     Dates: start: 20130129
  14. NORCO/ LORTAB [Concomitant]
     Indication: PAIN
     Dosage: 5/5800 500 MG-5 MG ORAL TABLET: 1TO 2 TABS, PO, Q6H, 30TAB, PRN
     Dates: start: 20130129
  15. FERROUS SULFATE [Concomitant]
     Route: 048
     Dates: start: 20130814
  16. BENZONATATE [Concomitant]
     Route: 048
     Dates: start: 20130814

REACTIONS (5)
  - Osteoporosis [Unknown]
  - Multiple fractures [Unknown]
  - Joint injury [Unknown]
  - Osteoarthritis [Unknown]
  - Arthralgia [Unknown]
